FAERS Safety Report 6695778-0 (Version None)
Quarter: 2010Q2

REPORT INFORMATION
  Report Type: 
  Country: None (occurrence: None)
  Receive Date: 20100423
  Receipt Date: 20100423
  Transmission Date: 20101027
  Serious: Yes (Other)
  Sender: FDA-Public Use
  Company Number: None

PATIENT
  Age: 63 Year
  Sex: Female
  Weight: 63.5036 kg

DRUGS (2)
  1. FRAGMIN [Suspect]
     Indication: THROMBOSIS PROPHYLAXIS
     Dosage: 5000 UNITS DAILY SQ
     Route: 058
     Dates: start: 20100406, end: 20100407
  2. ASPIRIN [Concomitant]

REACTIONS (1)
  - RETROPERITONEAL HAEMATOMA [None]
